FAERS Safety Report 12744890 (Version 1)
Quarter: 2016Q3

REPORT INFORMATION
  Report Type: Report from Study
  Country: US (occurrence: US)
  Receive Date: 20160915
  Receipt Date: 20160915
  Transmission Date: 20161109
  Serious: Yes (Death, Hospitalization, Other)
  Sender: FDA-Public Use
  Company Number: US-ROCHE-756242

PATIENT
  Age: 76 Year
  Sex: Female
  Weight: 73 kg

DRUGS (3)
  1. BEVACIZUMAB [Suspect]
     Active Substance: BEVACIZUMAB
     Dosage: OVER 30 TO 90 MIN ON DAYS 1 AND 15, CYCLE 28 DAYS (CYCLE 2)
     Route: 042
     Dates: start: 20100118, end: 20100209
  2. BEVACIZUMAB [Suspect]
     Active Substance: BEVACIZUMAB
     Indication: OVARIAN NEOPLASM
     Dosage: OVER 30 TO 90 MIN ON DAYS 1 AND 15, CYCLE 28 DAYS (CYCLE 1)
     Route: 042
  3. TEMSIROLIMUS [Suspect]
     Active Substance: TEMSIROLIMUS
     Indication: OVARIAN NEOPLASM
     Dosage: ON DAYS 1,8, 15, 22, CYCLE 28 DAYS
     Route: 042
     Dates: start: 20091207, end: 20100209

REACTIONS (7)
  - Death [Fatal]
  - Dehydration [Unknown]
  - Fatigue [Unknown]
  - Malignant pleural effusion [Unknown]
  - Blood fibrinogen decreased [Unknown]
  - Ascites [Unknown]
  - Vomiting [Unknown]

NARRATIVE: CASE EVENT DATE: 20100214
